FAERS Safety Report 5336543-6 (Version None)
Quarter: 2007Q2

REPORT INFORMATION
  Report Type: 
  Country: None (occurrence: None)
  Receive Date: 20070315
  Receipt Date: 20061205
  Transmission Date: 20071010
  Serious: Yes (Hospitalization)
  Sender: FDA-Public Use
  Company Number: PHEH2006US14910

PATIENT
  Age: 47 Year
  Sex: Female

DRUGS (6)
  1. TRILEPTAL [Suspect]
     Indication: EPILEPSY
  2. TOPAMAX [Suspect]
     Indication: EPILEPSY
     Dosage: SEE IMAGE
     Route: 048
  3. ACTONEL [Concomitant]
  4. RISPERDAL [Concomitant]
  5. BENZTROPINE MESYLATE [Concomitant]
  6. DIOVAN HCT [Concomitant]

REACTIONS (3)
  - CONVULSION [None]
  - FALL [None]
  - JAW FRACTURE [None]
